FAERS Safety Report 24388795 (Version 7)
Quarter: 2025Q2

REPORT INFORMATION
  Report Type: Report from Study
  Country: JP (occurrence: JP)
  Receive Date: 20241002
  Receipt Date: 20250523
  Transmission Date: 20250716
  Serious: No
  Sender: EISAI
  Company Number: JP-Eisai-202408158_LEQ_P_1

PATIENT
  Age: 86 Year
  Sex: Female
  Weight: 41.8 kg

DRUGS (4)
  1. LEQEMBI [Suspect]
     Active Substance: LECANEMAB-IRMB
     Indication: Cognitive disorder
     Dates: start: 20240601, end: 20240907
  2. PYRAZOLONE [Concomitant]
     Dates: start: 20240810, end: 20240924
  3. PYRAZOLONE [Concomitant]
  4. AMLODIPINE BESYLATE [Concomitant]
     Active Substance: AMLODIPINE BESYLATE

REACTIONS (1)
  - Amyloid related imaging abnormality-microhaemorrhages and haemosiderin deposits [Recovering/Resolving]

NARRATIVE: CASE EVENT DATE: 20240919
